FAERS Safety Report 10221471 (Version 1)
Quarter: 2014Q2

REPORT INFORMATION
  Report Type: Spontaneous
  Country: IE (occurrence: IE)
  Receive Date: 20140606
  Receipt Date: 20140606
  Transmission Date: 20141212
  Serious: Yes (Hospitalization, Other)
  Sender: FDA-Public Use
  Company Number: IE-ABBVIE-14P-229-1243616-00

PATIENT
  Sex: Female

DRUGS (2)
  1. HUMIRA [Suspect]
     Indication: RHEUMATOID ARTHRITIS
  2. HUMIRA [Suspect]

REACTIONS (4)
  - Vascular shunt [Recovering/Resolving]
  - Wheelchair user [Recovering/Resolving]
  - Knee arthroplasty [Recovering/Resolving]
  - Skin infection [Recovering/Resolving]
